FAERS Safety Report 18673177 (Version 1)
Quarter: 2020Q4

REPORT INFORMATION
  Report Type: Report from Study
  Country: US (occurrence: US)
  Receive Date: 20201228
  Receipt Date: 20201228
  Transmission Date: 20210114
  Serious: Yes (Death, Other)
  Sender: FDA-Public Use
  Company Number: US-ASTRAZENECA-2020SF21962

PATIENT
  Sex: Male

DRUGS (2)
  1. TAGRISSO [Suspect]
     Active Substance: OSIMERTINIB
     Route: 048
     Dates: start: 201710, end: 202004
  2. IRESSA [Concomitant]
     Active Substance: GEFITINIB
     Route: 048

REACTIONS (2)
  - Death [Fatal]
  - Disease progression [Unknown]
